FAERS Safety Report 8443272-9 (Version None)
Quarter: 2012Q2

REPORT INFORMATION
  Report Type: 
  Country: None (occurrence: None)
  Receive Date: 20120617
  Receipt Date: 20120517
  Transmission Date: 20120825
  Serious: Yes (Hospitalization)
  Sender: FDA-Public Use
  Company Number: PHHY2011JP05113

PATIENT
  Sex: Male

DRUGS (4)
  1. DIOVAN [Suspect]
     Dosage: 80 MG, QD
     Route: 048
     Dates: start: 20101018, end: 20101111
  2. KETAS [Concomitant]
     Dosage: UNK UKN, UNK
  3. DIOVAN [Suspect]
     Indication: HYPERTENSION
     Dosage: 80 MG, QD
     Route: 048
     Dates: start: 20030821, end: 20100831
  4. ANTIBIOTICS [Concomitant]
     Dosage: UNK UKN, UNK
     Dates: start: 20100724

REACTIONS (6)
  - SKIN EROSION [None]
  - PEMPHIGOID [None]
  - BLISTER [None]
  - ERYTHEMA [None]
  - RASH [None]
  - INFLAMMATION [None]
